FAERS Safety Report 4983689-8 (Version None)
Quarter: 2006Q2

REPORT INFORMATION
  Report Type: 
  Country: None (occurrence: None)
  Receive Date: 20060425
  Receipt Date: 20060425
  Transmission Date: 20061013
  Serious: Yes (Hospitalization)
  Sender: FDA-Public Use
  Company Number: None

PATIENT
  Age: 95 Year
  Sex: Male

DRUGS (6)
  1. LISINOPRIL [Suspect]
     Indication: HYPERTENSION
     Dosage: 2.5 MG DAILY
  2. WARFARIN SODIUM [Concomitant]
  3. HYDROCHLOROTHIAZIDE [Concomitant]
  4. ISORDIL [Concomitant]
  5. POTASSIUM CHLORIDE [Concomitant]
  6. FELODIPINE [Concomitant]

REACTIONS (2)
  - SPEECH DISORDER [None]
  - SWOLLEN TONGUE [None]
